FAERS Safety Report 25227687 (Version 1)
Quarter: 2025Q2

REPORT INFORMATION
  Report Type: Spontaneous
  Country: CN (occurrence: CN)
  Receive Date: 20250422
  Receipt Date: 20250422
  Transmission Date: 20250716
  Serious: Yes (Other)
  Sender: TWI PHARMACEUTICALS
  Company Number: CN-TWI PHARMACEUTICAL, INC-20250400756

PATIENT
  Age: 67 Year
  Sex: Female

DRUGS (5)
  1. DILTIAZEM HYDROCHLORIDE [Suspect]
     Active Substance: DILTIAZEM HYDROCHLORIDE
     Indication: Supraventricular tachycardia
     Route: 065
  2. METHOXYPHENAMINE HYDROCHLORIDE [Suspect]
     Active Substance: METHOXYPHENAMINE HYDROCHLORIDE
     Indication: Coronavirus infection
     Route: 065
     Dates: start: 20240217
  3. NOSCAPINE [Concomitant]
     Active Substance: NOSCAPINE
     Indication: Coronavirus infection
     Route: 065
     Dates: start: 20240217
  4. AMINOPHYLLINE [Concomitant]
     Active Substance: AMINOPHYLLINE
     Indication: Coronavirus infection
     Route: 065
     Dates: start: 20240217
  5. CHLORPHENIRAMINE MALEATE [Concomitant]
     Active Substance: CHLORPHENIRAMINE MALEATE
     Indication: Coronavirus infection
     Route: 065
     Dates: start: 20240217

REACTIONS (2)
  - Angina pectoris [Recovered/Resolved]
  - Drug interaction [Unknown]

NARRATIVE: CASE EVENT DATE: 20240201
